FAERS Safety Report 9944131 (Version 1)
Quarter: 2014Q1

REPORT INFORMATION
  Report Type: Spontaneous
  Country: US (occurrence: US)
  Receive Date: 20140303
  Receipt Date: 20140303
  Transmission Date: 20141002
  Serious: No
  Sender: FDA-Public Use
  Company Number: US-GILEAD-2012-0058479

PATIENT
  Sex: Male

DRUGS (3)
  1. RANEXA [Suspect]
     Indication: UNEVALUABLE EVENT
     Dosage: 1000 MG, BID
     Route: 048
  2. RANEXA [Suspect]
     Dosage: 500 MG, BID
     Route: 048
  3. TEGRETOL [Concomitant]

REACTIONS (2)
  - Pain [Unknown]
  - Angina pectoris [Unknown]
